FAERS Safety Report 10477395 (Version 2)
Quarter: 2014Q4

REPORT INFORMATION
  Report Type: Spontaneous
  Country: JP (occurrence: JP)
  Receive Date: 20140926
  Receipt Date: 20141014
  Transmission Date: 20150528
  Serious: Yes (Other)
  Sender: FDA-Public Use
  Company Number: JP-TEVA-510695ISR

PATIENT
  Age: 62 Year
  Sex: Female

DRUGS (4)
  1. REBAMIPIDE TAB.100MG [Concomitant]
     Dosage: 200 MILLIGRAM DAILY;
     Route: 048
     Dates: start: 20140404, end: 20140407
  2. ACICLOVIR TAB. TEVA [Suspect]
     Active Substance: ACYCLOVIR
     Indication: HERPES ZOSTER
     Dosage: 4000 MILLIGRAM DAILY;
     Route: 048
     Dates: start: 20140402, end: 20140408
  3. REBAMIPIDE TAB.100MG [Concomitant]
     Indication: PROPHYLAXIS
     Dosage: 200 MILLIGRAM DAILY;
     Route: 048
     Dates: start: 20140404, end: 20140407
  4. LOXOPROFEN [Concomitant]
     Active Substance: LOXOPROFEN
     Indication: PAIN
     Dosage: 120 MILLIGRAM DAILY;
     Route: 048
     Dates: start: 20140404, end: 20140407

REACTIONS (3)
  - Visual impairment [Unknown]
  - Road traffic accident [Unknown]
  - Somnolence [Unknown]

NARRATIVE: CASE EVENT DATE: 201404
